FAERS Safety Report 22079307 (Version 2)
Quarter: 2024Q1

REPORT INFORMATION
  Report Type: Spontaneous
  Country: SE (occurrence: SE)
  Receive Date: 20230309
  Receipt Date: 20240119
  Transmission Date: 20240409
  Serious: Yes (Death)
  Sender: FDA-Public Use
  Company Number: None

PATIENT
  Age: 33 Year
  Sex: Male
  Weight: 98 kg

DRUGS (19)
  1. LOPERAMIDE [Suspect]
     Active Substance: LOPERAMIDE
     Indication: Diarrhoea
     Dosage: 30 MILLIGRAM, QD (15 CAPSULES (30 MG) A DAY)
     Route: 065
     Dates: start: 2018
  2. ONDANSETRON [Concomitant]
     Active Substance: ONDANSETRON
     Dosage: UNK
     Route: 065
  3. AMITRIPTYLINE [Concomitant]
     Active Substance: AMITRIPTYLINE
     Dosage: 1 DOSAGE FORM, QD (1 PIECE AT 2 P.M)
     Route: 065
     Dates: start: 20180621
  4. PALEXIA [Concomitant]
     Active Substance: TAPENTADOL HYDROCHLORIDE
     Dosage: 1 DOSAGE FORM, QD (1PC AT 8AM)
     Route: 065
     Dates: start: 20220311
  5. PALEXIA [Concomitant]
     Active Substance: TAPENTADOL HYDROCHLORIDE
     Dosage: 1 DOSAGE FORM, BID(1PC AT 12PM 1PC AT 4PM)
     Route: 065
     Dates: start: 20190124
  6. PALEXIA [Concomitant]
     Active Substance: TAPENTADOL HYDROCHLORIDE
     Dosage: UNK, BID (2X2/DAY)
     Route: 065
     Dates: start: 20180424
  7. Postafen [Concomitant]
     Dosage: 1 DOSAGE FORM, PRN (1 PC AS NEEDED)
     Route: 065
     Dates: start: 20211203
  8. GABAPENTIN [Concomitant]
     Active Substance: GABAPENTIN
     Dosage: 2 DOSAGE FORM, TID (2PC X 3)
     Route: 065
     Dates: start: 20220407
  9. GABAPENTIN [Concomitant]
     Active Substance: GABAPENTIN
     Dosage: 3 DOSAGE FORM, TID (3 PCS X 3)
     Route: 065
     Dates: start: 20220120
  10. Mellozzan [Concomitant]
     Dosage: 1 DOSAGE FORM, QD (1 PC AT NIGHT)
     Route: 065
     Dates: start: 20220815
  11. MORPHINE [Concomitant]
     Active Substance: MORPHINE
     Dosage: 1 PC IF NEEDED. MAX 1 PC/DAY,
     Route: 065
     Dates: start: 20220131
  12. BETAPRED [Concomitant]
     Active Substance: BETAMETHASONE SODIUM PHOSPHATE
     Dosage: 10 DOSAGE FORM, PRN (10 TABLETS AS NEEDED)
     Route: 065
     Dates: start: 20220901
  13. SYMBICORT [Concomitant]
     Active Substance: BUDESONIDE\FORMOTEROL FUMARATE DIHYDRATE
     Dosage: UNK, PRN (1 DOSE AS NEEDED)
     Route: 065
     Dates: start: 20170605
  14. ESOMEPRAZOLE [Concomitant]
     Active Substance: ESOMEPRAZOLE
     Dosage: 1 DOSAGE FORM, PRN (1 PC AS NEEDED)
     Route: 065
  15. DESLORATADINE [Concomitant]
     Active Substance: DESLORATADINE
     Dosage: 1-2 PC 1-2 TIMES/DAY
     Route: 065
     Dates: start: 20210211
  16. PROPIOMAZINE [Concomitant]
     Active Substance: PROPIOMAZINE
     Dosage: UNK, PRN (1-2 PC AS NEEDED)
     Route: 065
     Dates: start: 20210106
  17. TRIMEPRAZINE [Concomitant]
     Active Substance: TRIMEPRAZINE
     Dosage: UNK, PRN (1-4 AS NEEDED)
     Route: 065
     Dates: start: 20201229
  18. ALBUTEROL SULFATE [Concomitant]
     Active Substance: ALBUTEROL SULFATE
     Dosage: UNK, PRN (1-2 IF NECESSARY)
     Route: 065
     Dates: start: 20170605
  19. ACETAMINOPHEN [Concomitant]
     Active Substance: ACETAMINOPHEN
     Dosage: 1 DOSAGE FORM, QID (1 PC X 4)
     Route: 065
     Dates: start: 20210614

REACTIONS (3)
  - Toxicity to various agents [Fatal]
  - Death [Fatal]
  - Overdose [Unknown]

NARRATIVE: CASE EVENT DATE: 20221002
